FAERS Safety Report 5158079-8 (Version None)
Quarter: 2006Q4

REPORT INFORMATION
  Report Type: 
  Country: None (occurrence: None)
  Receive Date: 20061116
  Receipt Date: 20061025
  Transmission Date: 20070319
  Serious: Yes (Hospitalization)
  Sender: FDA-Public Use
  Company Number: E3810-00320-CLI-JP

PATIENT
  Age: 57 Year
  Sex: Male
  Weight: 86 kg

DRUGS (9)
  1. RABEPRAZOLE SODIUM [Suspect]
     Indication: REFLUX OESOPHAGITIS
     Dosage: 10 MG, 1 IN 1 D, ORAL
     Route: 048
     Dates: start: 20050224
  2. FLUNASE (FLUTICASONE PROPIONATE) [Concomitant]
  3. Q+P KOWA I (VITAMIN PREPARATION COMPOUND) [Concomitant]
  4. URALYT (URALYT) [Concomitant]
  5. ALLOZYM (ALLOPURINOL) [Concomitant]
  6. TOWK (TRAMAZOLINE HYDROCHLORIDE) [Concomitant]
  7. METHYCOBAL (MECOBALAMIN) [Concomitant]
  8. ADETPHOS (ADENOSINE TRIPHOSPHATE, DISODIUM SALT) [Concomitant]
  9. MOHRUS TAPE (KETOPROFEN) [Concomitant]

REACTIONS (5)
  - CHRONIC SINUSITIS [None]
  - CONDITION AGGRAVATED [None]
  - NASAL CONGESTION [None]
  - NASAL POLYPS [None]
  - NASAL SEPTUM DEVIATION [None]
